FAERS Safety Report 23114218 (Version 1)
Quarter: 2023Q4

REPORT INFORMATION
  Report Type: Spontaneous
  Country: US (occurrence: US)
  Receive Date: 20231027
  Receipt Date: 20231027
  Transmission Date: 20240109
  Serious: No
  Sender: FDA-Public Use
  Company Number: US-GALDERMA-US2023015309

PATIENT

DRUGS (8)
  1. PROACTIV MD ADAPALENE ACNE TREATMENT [Suspect]
     Active Substance: ADAPALENE
     Indication: Acne
     Dosage: 1 DOSAGE FORM, QD
     Route: 061
     Dates: start: 202302, end: 20230908
  2. PROACTIV CLEAR SKIN SPF 30 [Concomitant]
     Active Substance: AVOBENZONE\OCTISALATE\OCTOCRYLENE
     Indication: Acne
     Dosage: 1 DOSAGE FORM, 2 OR MORE TIMES A DAY
     Route: 061
     Dates: start: 202302, end: 20230908
  3. Proactiv Oil Free Moisture SPF 15 [Concomitant]
     Indication: Acne
     Dosage: 1 DOSAGE FORM, 2 OR MORE TIMES A DAY
     Route: 061
     Dates: start: 202302, end: 20230908
  4. Proactiv MD Ultra Gentle Cleanser [Concomitant]
     Indication: Acne
     Dosage: 1 DOSAGE FORM, 2 OR MORE TIMES A DAY
     Route: 061
     Dates: start: 202302, end: 20230908
  5. Proactiv MD Ultra Hydrating Moisturizer [Concomitant]
     Indication: Acne
     Dosage: 1 DOSAGE FORM, 2 OR MORE TIMES A DAY
     Route: 061
     Dates: start: 202302, end: 20230908
  6. Proactiv Post Acne Dark Mark Relief [Concomitant]
     Indication: Acne
     Dosage: 1 DOSAGE FORM, 2 OR MORE TIMES A DAY
     Route: 061
     Dates: start: 202302, end: 20230908
  7. Proactiv Post Acne Scar Gel [Concomitant]
     Indication: Acne
     Dosage: 1 DOSAGE FORM, 2 OR MORE TIMES A DAY
     Route: 061
     Dates: start: 202302, end: 20230908
  8. PROACTIV REFINING MASK [Concomitant]
     Active Substance: SULFUR
     Indication: Acne
     Dosage: 1 DOSAGE FORM, 2 OR MORE TIMES A DAY
     Route: 061
     Dates: start: 202302, end: 20230908

REACTIONS (4)
  - Dry skin [Not Recovered/Not Resolved]
  - Acne [Not Recovered/Not Resolved]
  - Skin burning sensation [Not Recovered/Not Resolved]
  - Drug ineffective [Not Recovered/Not Resolved]

NARRATIVE: CASE EVENT DATE: 20230101
